FAERS Safety Report 22200830 (Version 2)
Quarter: 2023Q2

REPORT INFORMATION
  Report Type: Other
  Country: US (occurrence: None)
  Receive Date: 20230412
  Receipt Date: 20230413
  Transmission Date: 20230721
  Serious: Yes (Hospitalization)
  Sender: FDA-Public Use
  Company Number: US-ROCHE-3327865

PATIENT
  Age: 70 Year
  Sex: Male
  Weight: 86.260 kg

DRUGS (2)
  1. RITUXAN [Suspect]
     Active Substance: RITUXIMAB
     Indication: Secondary progressive multiple sclerosis
     Dosage: 600 MG IV OVER 3.5 HOURS ONCE EVERY 6 MONTHS, 2 DOSE SEPARATED BY 2 WEEKS EVERY 5 MONTHS
     Route: 041
     Dates: end: 202210
  2. RITUXAN [Suspect]
     Active Substance: RITUXIMAB
     Dosage: 2 DOSE SEPARATED BY 2 WEEKS EVERY 6 MONTHS ;ONGOING: NO
     Route: 042

REACTIONS (6)
  - B-lymphocyte count decreased [Not Recovered/Not Resolved]
  - Prostatic specific antigen increased [Recovered/Resolved]
  - Off label use [Unknown]
  - Anaemia [Unknown]
  - White blood cell count decreased [Unknown]
  - Urinary tract infection [Unknown]

NARRATIVE: CASE EVENT DATE: 20221001
